FAERS Safety Report 21188508 (Version 1)
Quarter: 2022Q3

REPORT INFORMATION
  Report Type: Spontaneous
  Country: US (occurrence: US)
  Receive Date: 20220809
  Receipt Date: 20220809
  Transmission Date: 20221027
  Serious: No
  Sender: FDA-Public Use
  Company Number: US-IGSA-BIG0017504

PATIENT

DRUGS (1)
  1. GAMUNEX-C [Suspect]
     Active Substance: HUMAN IMMUNOGLOBULIN G
     Indication: Small fibre neuropathy
     Dosage: UNK UNK, UNKNOWN
     Route: 065

REACTIONS (2)
  - Fatigue [Unknown]
  - Headache [Unknown]
